FAERS Safety Report 9300093 (Version 2)
Quarter: 2013Q3

REPORT INFORMATION
  Report Type: Report from Study
  Country: JP (occurrence: JP)
  Receive Date: 20130521
  Receipt Date: 20130723
  Transmission Date: 20140515
  Serious: Yes (Hospitalization)
  Sender: FDA-Public Use
  Company Number: JP-ROCHE-1224374

PATIENT
  Age: 67 Year
  Sex: Female
  Weight: 42 kg

DRUGS (8)
  1. BEVACIZUMAB [Suspect]
     Indication: BREAST CANCER METASTATIC
     Route: 041
     Dates: start: 20130405, end: 20130502
  2. PACLITAXEL [Suspect]
     Indication: BREAST CANCER METASTATIC
     Route: 041
     Dates: start: 20130405, end: 20130405
  3. PACLITAXEL [Suspect]
     Indication: BREAST CANCER METASTATIC
     Route: 041
     Dates: start: 20130412, end: 20130412
  4. PACLITAXEL [Suspect]
     Indication: BREAST CANCER METASTATIC
     Route: 041
     Dates: start: 20130419, end: 20130419
  5. PACLITAXEL [Suspect]
     Indication: BREAST CANCER METASTATIC
     Route: 041
     Dates: start: 20130502, end: 20130502
  6. RINDERON [Suspect]
     Indication: PRODUCT USED FOR UNKNOWN INDICATION
     Route: 048
  7. ZOMETA [Concomitant]
     Indication: BREAST CANCER METASTATIC
     Route: 041
     Dates: start: 20121003
  8. BETAMETHASONE [Concomitant]
     Indication: DECREASED APPETITE
     Route: 048
     Dates: start: 20130410, end: 20130509

REACTIONS (7)
  - Interstitial lung disease [Recovering/Resolving]
  - Pain [Unknown]
  - Hepatic function abnormal [Unknown]
  - Constipation [Unknown]
  - Gastritis [Unknown]
  - Cystitis [Unknown]
  - Insomnia [Unknown]
